FAERS Safety Report 10255292 (Version 1)
Quarter: 2014Q2

REPORT INFORMATION
  Report Type: Spontaneous
  Country: US (occurrence: US)
  Receive Date: 20140624
  Receipt Date: 20140624
  Transmission Date: 20141212
  Serious: No
  Sender: FDA-Public Use
  Company Number: US-PFIZER INC-2014171509

PATIENT
  Sex: Female

DRUGS (3)
  1. CYTOMEL [Suspect]
     Dosage: 5 UG, UNK
  2. SYNTHROID [Suspect]
     Dosage: 112 UG, UNK
  3. SYNTHROID [Suspect]
     Dosage: 125 UG, UNK

REACTIONS (3)
  - Agitation [Unknown]
  - Heart rate increased [Unknown]
  - Sleep disorder [Unknown]
